FAERS Safety Report 4595177-1 (Version None)
Quarter: 2005Q1

REPORT INFORMATION
  Report Type: 
  Country: None (occurrence: None)
  Receive Date: 20050224
  Receipt Date: 20050215
  Transmission Date: 20050727
  Serious: Yes (Hospitalization)
  Sender: FDA-Public Use
  Company Number: 00-08-0123

PATIENT
  Age: 58 Year
  Sex: Male

DRUGS (2)
  1. THALOMID [Suspect]
     Indication: MYELOID METAPLASIA
     Dosage: 200 MG, DAY, ORAL
     Route: 048
     Dates: start: 20000627, end: 20000821
  2. ACETYLSALICYLIC ACID SRT [Concomitant]

REACTIONS (5)
  - ABDOMINAL PAIN [None]
  - CARDIAC TAMPONADE [None]
  - EXTRAMEDULLARY HAEMOPOIESIS [None]
  - PERICARDIAL EFFUSION [None]
  - THROMBOCYTHAEMIA [None]
